FAERS Safety Report 20696696 (Version 1)
Quarter: 2022Q2

REPORT INFORMATION
  Report Type: Report from Study
  Country: ES (occurrence: ES)
  Receive Date: 20220411
  Receipt Date: 20220411
  Transmission Date: 20220720
  Serious: Yes (Other)
  Sender: FDA-Public Use
  Company Number: ES-JNJFOC-20220411152

PATIENT

DRUGS (1)
  1. SYMTUZA [Suspect]
     Active Substance: COBICISTAT\DARUNAVIR\EMTRICITABINE\TENOFOVIR ALAFENAMIDE
     Indication: HIV infection
     Dosage: FIXED DOSE (800 MG, 150 MG, 200 MG, AND 10 MG RESPECTIVELY)
     Route: 048

REACTIONS (41)
  - Pulmonary tuberculosis [Unknown]
  - Toxic skin eruption [Unknown]
  - Suicidal ideation [Unknown]
  - Diarrhoea [Unknown]
  - Dyspepsia [Unknown]
  - Abdominal pain [Unknown]
  - Constipation [Unknown]
  - Decreased appetite [Unknown]
  - Flatulence [Unknown]
  - Dry mouth [Unknown]
  - Dyspepsia [Unknown]
  - Vomiting [Unknown]
  - Hypersensitivity [Unknown]
  - Rash [Unknown]
  - Pruritus [Unknown]
  - Anxiety [Unknown]
  - Depression [Unknown]
  - Insomnia [Unknown]
  - Headache [Unknown]
  - Dizziness [Unknown]
  - Nightmare [Unknown]
  - Disturbance in attention [Unknown]
  - Somnolence [Unknown]
  - Arthralgia [Unknown]
  - Musculoskeletal pain [Unknown]
  - Asthenia [Unknown]
  - Muscle spasms [Unknown]
  - Fatigue [Unknown]
  - Muscle contracture [Unknown]
  - Paraesthesia [Unknown]
  - Musculoskeletal pain [Unknown]
  - Discomfort [Unknown]
  - Myositis [Unknown]
  - Paraesthesia [Unknown]
  - Pyrexia [Unknown]
  - Dyslipidaemia [Unknown]
  - Weight increased [Unknown]
  - Hypertransaminasaemia [Unknown]
  - Neoplasm [Unknown]
  - Rash [Unknown]
  - Adverse event [Unknown]
